FAERS Safety Report 18881111 (Version 3)
Quarter: 2021Q1

REPORT INFORMATION
  Report Type: Spontaneous
  Country: US (occurrence: US)
  Receive Date: 20210211
  Receipt Date: 20210326
  Transmission Date: 20210420
  Serious: Yes (Hospitalization)
  Sender: FDA-Public Use
  Company Number: US-PFIZER INC-2021119851

PATIENT
  Age: 59 Year
  Sex: Male
  Weight: 118 kg

DRUGS (1)
  1. PHENYTOIN SODIUM. [Suspect]
     Active Substance: PHENYTOIN SODIUM
     Indication: SEIZURE
     Dosage: 300 MG, 1X/DAY
     Dates: start: 1972

REACTIONS (2)
  - Drug ineffective [Not Recovered/Not Resolved]
  - Anticonvulsant drug level below therapeutic [Not Recovered/Not Resolved]
